FAERS Safety Report 5950803-7 (Version None)
Quarter: 2008Q4

REPORT INFORMATION
  Report Type: 
  Country: None (occurrence: None)
  Receive Date: 20081022
  Receipt Date: 20080815
  Transmission Date: 20090506
  Serious: No
  Sender: FDA-Public Use
  Company Number: ALL1-2008-02316

PATIENT
  Age: 41 Year
  Sex: Male
  Weight: 124.7 kg

DRUGS (4)
  1. VYVANSE [Suspect]
     Indication: ATTENTION DEFICIT/HYPERACTIVITY DISORDER
     Dosage: 30 MG,1X/DAY:QD,ORAL
     Route: 048
     Dates: start: 20080701
  2. AMBIEN [Concomitant]
  3. PROZAC /00724401/ (FLUOXETINE) [Concomitant]
  4. ANTIHYPERTENSIVES [Concomitant]

REACTIONS (2)
  - FATIGUE [None]
  - MUSCLE TIGHTNESS [None]
